FAERS Safety Report 9725495 (Version 2)
Quarter: 2014Q2

REPORT INFORMATION
  Report Type: Spontaneous
  Country: US (occurrence: None)
  Receive Date: 20131127
  Receipt Date: 20140415
  Transmission Date: 20141212
  Serious: Yes (Other)
  Sender: FDA-Public Use
  Company Number: 2013-US-003527

PATIENT
  Age: 57 Year
  Sex: Female

DRUGS (1)
  1. XYREM (SODIUM OXYBATE) ORAL SOLUTION, 500MG/ML [Suspect]
     Indication: NARCOLEPSY
     Route: 048
     Dates: start: 201302, end: 2013

REACTIONS (6)
  - Brain injury [None]
  - Cerebral haemorrhage [None]
  - Skull fracture [None]
  - Road traffic accident [None]
  - Convulsion [None]
  - Migraine [None]
